FAERS Safety Report 16641029 (Version 2)
Quarter: 2019Q3

REPORT INFORMATION
  Report Type: Spontaneous
  Country: CN (occurrence: CN)
  Receive Date: 20190729
  Receipt Date: 20190819
  Transmission Date: 20191004
  Serious: Yes (Life-Threatening, Other)
  Sender: FDA-Public Use
  Company Number: CN-009507513-1907CHN014552

PATIENT
  Age: 62 Year
  Sex: Male
  Weight: 78 kg

DRUGS (18)
  1. SULFAMETHOXAZOLE SODIUM [Concomitant]
     Indication: ANTIFUNGAL PROPHYLAXIS
     Dosage: 0.48 GRAM (TOTAL DAILY DOSAGE)
     Route: 048
     Dates: start: 20180517, end: 20180623
  2. SODIUM BICARBONATE. [Concomitant]
     Active Substance: SODIUM BICARBONATE
     Indication: URINE ALKALINISATION THERAPY
     Dosage: 3 GRAM (TOTAL DAILY DOSAGE)
     Route: 048
     Dates: start: 20180517, end: 20180623
  3. ENTECAVIR. [Concomitant]
     Active Substance: ENTECAVIR
     Indication: ANTIVIRAL PROPHYLAXIS
     Dosage: 0.5 MILLIGRAM
     Route: 048
     Dates: start: 20180515, end: 20180623
  4. GLUTATHIONE [Concomitant]
     Active Substance: GLUTATHIONE
     Indication: PROPHYLAXIS
     Dosage: 1.8 GRAM (TOTAL DAILY DOSAGE)
     Dates: start: 20180518, end: 20180621
  5. TIENAM [Suspect]
     Active Substance: CILASTATIN SODIUM\IMIPENEM
     Indication: KLEBSIELLA INFECTION
     Dosage: 1 GRAM, Q6H, IV MIRCROPUMP OVER 2 HOUR (4G/DAY, IVVP(2H))
     Route: 042
     Dates: start: 20180520, end: 20180526
  6. GANCICLOVIR. [Concomitant]
     Active Substance: GANCICLOVIR
     Indication: EPSTEIN-BARR VIRUS INFECTION
     Dosage: 350 MILLIGRAM
     Dates: start: 20180516, end: 20180621
  7. PANTOPRAZOLE [Concomitant]
     Active Substance: PANTOPRAZOLE
     Indication: ANTACID THERAPY
     Dosage: 40 MILLIGRAM (TOTAL DAILY DOSAGE)
     Dates: start: 20180515, end: 20180614
  8. TIGECYCLINE. [Concomitant]
     Active Substance: TIGECYCLINE
     Indication: ABDOMINAL INFECTION
     Dosage: 100 MILLIGRAM, Q12H( ALSO REPORTED AS 100 MG DAILY DOSE)
     Route: 041
     Dates: start: 20180520, end: 20180526
  9. CASPOFUNGIN ACETATE. [Concomitant]
     Active Substance: CASPOFUNGIN ACETATE
     Indication: ANTIFUNGAL PROPHYLAXIS
     Dosage: 50 MILLIGRAM (TOTAL DAILY DOSAGE), ROUTE: INJECTION
     Dates: start: 20180514, end: 20180524
  10. POLYMYXIN B SULFATE. [Concomitant]
     Active Substance: POLYMYXIN B SULFATE
     Indication: ANTIFUNGAL PROPHYLAXIS
     Dosage: 200 MILLIGRAM, Q12H IV MICROPUMP OVER 2 HOUR
     Route: 042
     Dates: start: 201805
  11. NICARDIPINE HYDROCHLORIDE. [Concomitant]
     Active Substance: NICARDIPINE HYDROCHLORIDE
     Indication: BLOOD PRESSURE MANAGEMENT
     Dosage: 20 MILLIGRAM (TOTAL DAILY DOSAGE)
     Dates: start: 20180514, end: 20180514
  12. INSULIN HUMAN [Concomitant]
     Active Substance: INSULIN HUMAN
     Indication: DIABETES MELLITUS MANAGEMENT
     Dosage: 32 UNITS (TOTAL DAILY DOSAGE)
     Dates: start: 20180514, end: 20180605
  13. CASPOFUNGIN ACETATE. [Concomitant]
     Active Substance: CASPOFUNGIN ACETATE
     Dosage: 50 MILLIGRAM (TOTAL DAILY DOSAGE), ROUTE: INJECTION
     Dates: start: 20180531, end: 20180611
  14. POLYMYXIN B SULFATE. [Concomitant]
     Active Substance: POLYMYXIN B SULFATE
     Indication: ANTIBIOTIC PROPHYLAXIS
     Dosage: 100 MILLIGRAM, Q12H (ALSO REPORTED AS 100 MG DAILY DOSE)
     Route: 042
     Dates: start: 20180514, end: 20180611
  15. POLYMYXIN B SULFATE. [Concomitant]
     Active Substance: POLYMYXIN B SULFATE
     Indication: KLEBSIELLA INFECTION
  16. NICARDIPINE HYDROCHLORIDE. [Concomitant]
     Active Substance: NICARDIPINE HYDROCHLORIDE
     Dosage: 20 MILLIGRAM (TOTAL DAILY DOSAGE)
     Dates: start: 20180526, end: 20180528
  17. POLYMYXIN B SULFATE. [Concomitant]
     Active Substance: POLYMYXIN B SULFATE
     Indication: ABDOMINAL INFECTION
  18. TIGECYCLINE. [Concomitant]
     Active Substance: TIGECYCLINE
     Indication: KLEBSIELLA INFECTION
     Dosage: 200 MILLIGRAM, Q12H
     Route: 041
     Dates: start: 201805

REACTIONS (1)
  - Nervous system disorder [Recovered/Resolved]

NARRATIVE: CASE EVENT DATE: 20180526
